FAERS Safety Report 8237763-3 (Version None)
Quarter: 2012Q1

REPORT INFORMATION
  Report Type: 
  Country: None (occurrence: None)
  Receive Date: 20120309
  Receipt Date: 20101129
  Transmission Date: 20120608
  Serious: Yes (Other)
  Sender: FDA-Public Use
  Company Number: PHHY2010US68431

PATIENT
  Age: 42 Year
  Sex: Female

DRUGS (17)
  1. SYNTHROID [Concomitant]
  2. SINGULAIR [Concomitant]
  3. MULTIVITAMINS (ASCORBIC ACID, ERGOCALCIFEROL, FOLIC ACID, NICOTINAMIDE [Concomitant]
  4. STEROID (NO INGREDIENTS/SUBSTANCES) [Concomitant]
  5. TOPROL-XL [Concomitant]
  6. VITAMIN D [Concomitant]
  7. VITAMIN B12 [Concomitant]
  8. CALCIUM CARBONATE [Concomitant]
  9. MECLIZINE (MECLOZINE), 25 G [Concomitant]
  10. TRAMADOL HCL [Concomitant]
  11. LORTAB [Concomitant]
  12. EFFEXOR [Concomitant]
  13. NALTREXONE HYDROCHLORIDE [Concomitant]
  14. EXTAVIA [Suspect]
     Indication: MULTIPLE SCLEROSIS
     Dosage: 0.25 MG, QOD, SUBCUTANEOUS
     Route: 058
     Dates: start: 20100818
  15. ZETIA [Concomitant]
  16. ALBUTEROL (SALBUTAMOL), 17 G [Concomitant]
  17. ZYRTEC [Concomitant]

REACTIONS (7)
  - MULTIPLE SCLEROSIS RELAPSE [None]
  - INJECTION SITE DISCOLOURATION [None]
  - INJECTION SITE ERYTHEMA [None]
  - GAIT DISTURBANCE [None]
  - INJECTION SITE REACTION [None]
  - INJECTION SITE SWELLING [None]
  - INJECTION SITE VESICLES [None]
